FAERS Safety Report 8306258-0 (Version None)
Quarter: 2012Q2

REPORT INFORMATION
  Report Type: 
  Country: None (occurrence: None)
  Receive Date: 20120423
  Receipt Date: 20120416
  Transmission Date: 20120825
  Serious: Yes (Death, Hospitalization)
  Sender: FDA-Public Use
  Company Number: FR-ROCHE-1060324

PATIENT
  Sex: Female

DRUGS (1)
  1. VEMURAFENIB [Suspect]
     Indication: MALIGNANT MELANOMA
     Dosage: INDICATION REPORTED AS RIGHT ANGULO MAXILLARY MELANOMA
     Route: 048
     Dates: start: 20111213, end: 20120326

REACTIONS (1)
  - GENERAL PHYSICAL HEALTH DETERIORATION [None]
